FAERS Safety Report 18929098 (Version 3)
Quarter: 2021Q1

REPORT INFORMATION
  Report Type: Spontaneous
  Country: SI (occurrence: SI)
  Receive Date: 20210223
  Receipt Date: 20210311
  Transmission Date: 20210420
  Serious: Yes (Other)
  Sender: FDA-Public Use
  Company Number: SI-ASTRAZENECA-2021A071133

PATIENT
  Age: 60 Year
  Sex: Male

DRUGS (13)
  1. XIGDUO XR [Suspect]
     Active Substance: DAPAGLIFLOZIN PROPANEDIOL\METFORMIN HYDROCHLORIDE
     Indication: OXYGEN THERAPY
     Dosage: 5/1000 MG 2X1 TBL/DAY
     Route: 048
     Dates: start: 20200504, end: 20201103
  2. KEPPRA [Concomitant]
     Active Substance: LEVETIRACETAM
     Dosage: 2X1500 MG
     Route: 065
  3. AGLURAB [Concomitant]
     Active Substance: METFORMIN HYDROCHLORIDE
     Dosage: 2.5 MG
     Route: 065
  4. XIGDUO XR [Suspect]
     Active Substance: DAPAGLIFLOZIN PROPANEDIOL\METFORMIN HYDROCHLORIDE
     Indication: TYPE 2 DIABETES MELLITUS
     Route: 048
     Dates: start: 20200504, end: 20201125
  5. XIGDUO XR [Suspect]
     Active Substance: DAPAGLIFLOZIN PROPANEDIOL\METFORMIN HYDROCHLORIDE
     Indication: PERIPHERAL ARTERIAL OCCLUSIVE DISEASE
     Route: 048
     Dates: start: 20200504, end: 20201125
  6. AMLOPIN [Concomitant]
     Dosage: 5 MG
     Route: 065
  7. XIGDUO XR [Suspect]
     Active Substance: DAPAGLIFLOZIN PROPANEDIOL\METFORMIN HYDROCHLORIDE
     Indication: PERIPHERAL ARTERIAL OCCLUSIVE DISEASE
     Dosage: 5/1000 MG 2X1 TBL/DAY
     Route: 048
     Dates: start: 20200504, end: 20201103
  8. PERCARNIL [Concomitant]
     Dosage: 8 MG
     Route: 065
  9. SORTIS [Concomitant]
     Active Substance: ATORVASTATIN
     Dosage: 40 MG
     Route: 065
  10. XIGDUO XR [Suspect]
     Active Substance: DAPAGLIFLOZIN PROPANEDIOL\METFORMIN HYDROCHLORIDE
     Indication: TYPE 2 DIABETES MELLITUS
     Dosage: 5/1000 MG 2X1 TBL/DAY
     Route: 048
     Dates: start: 20200504, end: 20201103
  11. CIPRALEX [Concomitant]
     Active Substance: ESCITALOPRAM OXALATE
     Dosage: 10 MG
     Route: 065
  12. XIGDUO XR [Suspect]
     Active Substance: DAPAGLIFLOZIN PROPANEDIOL\METFORMIN HYDROCHLORIDE
     Indication: OXYGEN THERAPY
     Route: 048
     Dates: start: 20200504, end: 20201125
  13. ASPIRIN. [Concomitant]
     Active Substance: ASPIRIN
     Dosage: 100 MG
     Route: 065

REACTIONS (7)
  - Hypoglycaemia [Unknown]
  - Depression [Unknown]
  - Gangrene [Recovered/Resolved with Sequelae]
  - Impaired healing [Unknown]
  - Toe amputation [Unknown]
  - Decreased appetite [Unknown]
  - Muscle strain [Unknown]

NARRATIVE: CASE EVENT DATE: 20201109
